FAERS Safety Report 25597026 (Version 1)
Quarter: 2025Q3

REPORT INFORMATION
  Report Type: Spontaneous
  Country: US (occurrence: None)
  Receive Date: 20250723
  Receipt Date: 20250723
  Transmission Date: 20251021
  Serious: No
  Sender: INCYTE
  Company Number: US-INCYTE CORPORATION-2025IN007840

PATIENT
  Age: 11 Year

DRUGS (2)
  1. JAKAFI [Suspect]
     Active Substance: RUXOLITINIB
     Indication: Acquired gene mutation
     Dosage: TAKE 1.5 TABLETS (7.5MG)  BY MOUTH 2 TIMES DAILY
  2. ALBUTEROL SULFATE [Concomitant]
     Active Substance: ALBUTEROL SULFATE
     Indication: Product used for unknown indication
     Route: 065

REACTIONS (6)
  - Off label use [Unknown]
  - Blood iron decreased [Unknown]
  - Wrong technique in product usage process [Unknown]
  - Arthropod infestation [Unknown]
  - Product dose omission issue [Unknown]
  - Product availability issue [Unknown]
